FAERS Safety Report 8674024 (Version 2)
Quarter: 2013Q4

REPORT INFORMATION
  Report Type: Spontaneous
  Country: DK (occurrence: DK)
  Receive Date: 20120719
  Receipt Date: 20131101
  Transmission Date: 20140711
  Serious: No
  Sender: FDA-Public Use
  Company Number: DK-009507513-1207DNK005733

PATIENT
  Age: 31 Year
  Sex: Male
  Weight: 82 kg

DRUGS (2)
  1. SYCREST [Suspect]
     Indication: BIPOLAR I DISORDER
     Dosage: STYRKE: 10 MG
     Route: 060
     Dates: start: 20120403
  2. LAMOTRIGINE [Concomitant]
     Indication: BIPOLAR DISORDER
     Dates: start: 20100518

REACTIONS (3)
  - Pruritus [Not Recovered/Not Resolved]
  - Thirst [Not Recovered/Not Resolved]
  - Polydipsia [Not Recovered/Not Resolved]
